FAERS Safety Report 10468524 (Version 1)
Quarter: 2014Q3

REPORT INFORMATION
  Report Type: Report from Study
  Country: MX (occurrence: MX)
  Receive Date: 20140922
  Receipt Date: 20140922
  Transmission Date: 20150326
  Serious: Yes (Disabling)
  Sender: FDA-Public Use
  Company Number: PHHY2014MX123218

PATIENT
  Age: 90 Year
  Sex: Female

DRUGS (4)
  1. EXFORGE [Suspect]
     Active Substance: AMLODIPINE BESYLATE\VALSARTAN
     Indication: HYPERTENSION
     Dosage: 1 DF, DAILY
     Dates: start: 2008
  2. AMARYL [Suspect]
     Active Substance: GLIMEPIRIDE
     Indication: CARDIAC DISORDER
     Dosage: 1 DF, DAILY
     Dates: start: 2009
  3. MULTIBIONTA [Suspect]
     Active Substance: MINERALS\PROBIOTICS NOS\VITAMINS
     Indication: DIABETES MELLITUS
     Dosage: 1 DF, DAILY (SHE STOPPED TAKING IT EVERY 3 MONTHS)
     Dates: start: 201401
  4. GALVUS MET [Suspect]
     Active Substance: METFORMIN HYDROCHLORIDE\VILDAGLIPTIN
     Dosage: 1 DF, DAILY
     Route: 048

REACTIONS (5)
  - General physical health deterioration [Not Recovered/Not Resolved]
  - Hypoacusis [Not Recovered/Not Resolved]
  - Abasia [Not Recovered/Not Resolved]
  - Sciatica [Not Recovered/Not Resolved]
  - Aphasia [Not Recovered/Not Resolved]
